FAERS Safety Report 8334424-7 (Version None)
Quarter: 2012Q2

REPORT INFORMATION
  Report Type: 
  Country: None (occurrence: None)
  Receive Date: 20120503
  Receipt Date: 20110811
  Transmission Date: 20120825
  Serious: No
  Sender: FDA-Public Use
  Company Number: US-BAUSCH-2011BL005338

PATIENT
  Age: 64 Year
  Sex: Female

DRUGS (6)
  1. ADVANCED EYE RELIEF/DRY EYE/ENVIRONMENTAL LUBRICANT EYE DROPS [Concomitant]
  2. PROPYLENE GLYCOL [Concomitant]
  3. LOTEMAX [Suspect]
     Indication: DRY EYE
     Route: 047
     Dates: start: 20110808, end: 20110808
  4. LOTEMAX [Suspect]
     Route: 061
     Dates: start: 20110809, end: 20110809
  5. LOTEMAX [Suspect]
     Route: 047
     Dates: start: 20110810, end: 20110810
  6. GENTEAL [Concomitant]

REACTIONS (3)
  - INCORRECT ROUTE OF DRUG ADMINISTRATION [None]
  - DRY EYE [None]
  - SKIN INJURY [None]
